FAERS Safety Report 8273791-X (Version None)
Quarter: 2012Q2

REPORT INFORMATION
  Report Type: 
  Country: None (occurrence: None)
  Receive Date: 20120411
  Receipt Date: 20120402
  Transmission Date: 20120825
  Serious: Yes (Other)
  Sender: FDA-Public Use
  Company Number: FR-FRI-1000029687

PATIENT
  Sex: Female

DRUGS (3)
  1. ESCITALOPRAM [Suspect]
     Dosage: OVERDOSE: 25 MG DAILY
     Route: 048
  2. ESCITALOPRAM [Suspect]
     Indication: PHOBIA
     Dosage: OVERDOSE: 40 MG DAILY
     Route: 048
     Dates: start: 20070101, end: 20100501
  3. ESCITALOPRAM [Suspect]
     Dosage: 20 MG
     Route: 048
     Dates: end: 20100101

REACTIONS (5)
  - AFFECT LABILITY [None]
  - AGITATION [None]
  - OVERDOSE [None]
  - IRRITABILITY [None]
  - FLAT AFFECT [None]
